FAERS Safety Report 10353204 (Version 2)
Quarter: 2014Q3

REPORT INFORMATION
  Report Type: Report from Study
  Country: US (occurrence: US)
  Receive Date: 20140730
  Receipt Date: 20140730
  Transmission Date: 20150326
  Serious: Yes (Death)
  Sender: FDA-Public Use
  Company Number: US-EXELIXIS-CABO-14004527

PATIENT
  Age: 77 Year
  Sex: Male

DRUGS (7)
  1. LORAZEPAM. [Concomitant]
     Active Substance: LORAZEPAM
  2. DEXAMETHASONE. [Concomitant]
     Active Substance: DEXAMETHASONE
  3. ASPIRIN. [Concomitant]
     Active Substance: ASPIRIN
  4. OSCAL ULTRA [Concomitant]
  5. CABOZANTINIB [Suspect]
     Active Substance: CABOZANTINIB
     Indication: BLADDER CANCER
     Dosage: 60 MG, QD
     Route: 048
     Dates: start: 20140618, end: 20140725
  6. VENTOLIN [Concomitant]
     Active Substance: ALBUTEROL SULFATE
  7. DENOSUMAB [Concomitant]
     Active Substance: DENOSUMAB

REACTIONS (6)
  - Decreased appetite [Not Recovered/Not Resolved]
  - Off label use [Unknown]
  - Death [Fatal]
  - Asthenia [Unknown]
  - Diarrhoea [Unknown]
  - Constipation [Not Recovered/Not Resolved]

NARRATIVE: CASE EVENT DATE: 2014
